FAERS Safety Report 6146169-2 (Version None)
Quarter: 2009Q2

REPORT INFORMATION
  Report Type: 
  Country: None (occurrence: None)
  Receive Date: 20090403
  Receipt Date: 20090330
  Transmission Date: 20091009
  Serious: Yes (Hospitalization, Other)
  Sender: FDA-Public Use
  Company Number: JHP200900097

PATIENT
  Age: 21 Year
  Sex: Female

DRUGS (2)
  1. EPINEPHRINE [Suspect]
     Indication: CARDIAC ELECTROPHYSIOLOGIC STUDY
  2. ISOPROTERENOL HCL [Suspect]
     Indication: CARDIAC ELECTROPHYSIOLOGIC STUDY

REACTIONS (3)
  - EJECTION FRACTION DECREASED [None]
  - SINUS TACHYCARDIA [None]
  - STRESS CARDIOMYOPATHY [None]
